FAERS Safety Report 9431848 (Version 2)
Quarter: 2013Q3

REPORT INFORMATION
  Report Type: Spontaneous
  Country: US (occurrence: None)
  Receive Date: 20130726
  Receipt Date: 20130830
  Transmission Date: 20140515
  Serious: Yes (Other)
  Sender: FDA-Public Use
  Company Number: 2013AP006768

PATIENT
  Age: 66 Year
  Sex: Male
  Weight: 155.13 kg

DRUGS (7)
  1. GABAPENTIN [Suspect]
     Indication: NEURALGIA
     Route: 048
  2. ALLOPURINOL [Concomitant]
  3. FUROSEMIDE [Concomitant]
  4. ATENOLOL [Concomitant]
  5. POTASSIUM [Concomitant]
  6. OMEPRAZOLE [Concomitant]
  7. EPLERENONE [Concomitant]

REACTIONS (4)
  - Drug ineffective [None]
  - Melanocytic naevus [None]
  - Ankle fracture [None]
  - Skin lesion [None]
